FAERS Safety Report 7817759-3 (Version None)
Quarter: 2011Q4

REPORT INFORMATION
  Report Type: 
  Country: None (occurrence: None)
  Receive Date: 20111017
  Receipt Date: 20111004
  Transmission Date: 20120403
  Serious: Yes (Hospitalization, Other)
  Sender: FDA-Public Use
  Company Number: DE-JNJFOC-20110811125

PATIENT
  Sex: Male

DRUGS (2)
  1. ZYRTEC [Suspect]
     Route: 048
  2. ZYRTEC [Suspect]
     Indication: SEASONAL ALLERGY
     Dosage: ^EVERY YEAR OVER SEVERAL MONTHS^
     Route: 048
     Dates: start: 20090101, end: 20110901

REACTIONS (1)
  - GRAND MAL CONVULSION [None]
